FAERS Safety Report 22284245 (Version 3)
Quarter: 2024Q1

REPORT INFORMATION
  Report Type: Spontaneous
  Country: FR (occurrence: FR)
  Receive Date: 20230504
  Receipt Date: 20240221
  Transmission Date: 20240410
  Serious: Yes (Death, Hospitalization, Other)
  Sender: FDA-Public Use
  Company Number: FR-009507513-2304FRA005596

PATIENT
  Age: 80 Year
  Sex: Female
  Weight: 75 kg

DRUGS (29)
  1. CARBOPLATIN [Suspect]
     Active Substance: CARBOPLATIN
     Indication: Triple negative breast cancer
     Dosage: UNK UNK, WEEKLY
     Dates: start: 20221118, end: 20221118
  2. CARBOPLATIN [Suspect]
     Active Substance: CARBOPLATIN
     Dosage: UNK, WEEKLY
     Dates: start: 20221125, end: 20221125
  3. CARBOPLATIN [Suspect]
     Active Substance: CARBOPLATIN
     Dosage: UNK UNK, WEEKLY
     Dates: start: 20221209, end: 20221209
  4. CARBOPLATIN [Suspect]
     Active Substance: CARBOPLATIN
     Dosage: UNK, WEEKLY
     Dates: start: 20221216, end: 20221216
  5. CARBOPLATIN [Suspect]
     Active Substance: CARBOPLATIN
     Dosage: UNK, WEEKLY
     Dates: start: 20221223, end: 20221223
  6. CARBOPLATIN [Suspect]
     Active Substance: CARBOPLATIN
     Dosage: UNK UNK, WEEKLY
     Dates: start: 20230106, end: 20230106
  7. CARBOPLATIN [Suspect]
     Active Substance: CARBOPLATIN
     Dosage: UNK, WEEKLY
     Dates: start: 20230113, end: 20230113
  8. CARBOPLATIN [Suspect]
     Active Substance: CARBOPLATIN
     Dosage: UNK, WEEKLY
     Dates: start: 20230120, end: 20230120
  9. CARBOPLATIN [Suspect]
     Active Substance: CARBOPLATIN
     Dosage: UNK UNK, WEEKLY
     Dates: start: 20230210, end: 20230210
  10. CARBOPLATIN [Suspect]
     Active Substance: CARBOPLATIN
     Dosage: UNK UNK, WEEKLY
     Dates: start: 20230224, end: 20230224
  11. PACLITAXEL [Suspect]
     Active Substance: PACLITAXEL
     Indication: Triple negative breast cancer
     Dosage: UNK UNK, WEEKLY
     Dates: start: 20221118, end: 20221118
  12. PACLITAXEL [Suspect]
     Active Substance: PACLITAXEL
     Dosage: UNK, WEEKLY
     Dates: start: 20221125, end: 20221125
  13. PACLITAXEL [Suspect]
     Active Substance: PACLITAXEL
     Dosage: UNK UNK, WEEKLY
     Dates: start: 20221209, end: 20221209
  14. PACLITAXEL [Suspect]
     Active Substance: PACLITAXEL
     Dosage: UNK, WEEKLY
     Dates: start: 20221216, end: 20221216
  15. PACLITAXEL [Suspect]
     Active Substance: PACLITAXEL
     Dosage: UNK, WEEKLY
     Dates: start: 20221223, end: 20221223
  16. PACLITAXEL [Suspect]
     Active Substance: PACLITAXEL
     Dosage: UNK UNK, WEEKLY
     Dates: start: 20230106, end: 20230106
  17. PACLITAXEL [Suspect]
     Active Substance: PACLITAXEL
     Dosage: UNK, WEEKLY
     Dates: start: 20230120, end: 20230120
  18. PACLITAXEL [Suspect]
     Active Substance: PACLITAXEL
     Dosage: UNK, WEEKLY
     Dates: start: 20230113, end: 20230113
  19. PACLITAXEL [Suspect]
     Active Substance: PACLITAXEL
     Dosage: UNK UNK, WEEKLY
     Dates: start: 20230210, end: 20230210
  20. PACLITAXEL [Suspect]
     Active Substance: PACLITAXEL
     Dosage: UNK UNK, WEEKLY
     Dates: start: 20230224, end: 20230224
  21. KEYTRUDA [Suspect]
     Active Substance: PEMBROLIZUMAB
     Indication: Triple negative breast cancer
     Dosage: 200 MILLIGRAM EVERY 3 WEEKS
     Dates: start: 20221118, end: 20221118
  22. KEYTRUDA [Suspect]
     Active Substance: PEMBROLIZUMAB
     Dosage: 200 MILLIGRAM EVERY 3 WEEKS
     Dates: start: 20221216, end: 20221216
  23. KEYTRUDA [Suspect]
     Active Substance: PEMBROLIZUMAB
     Dosage: 200 MILLIGRAM EVERY 3 WEEKS
     Dates: start: 20230113, end: 20230113
  24. KEYTRUDA [Suspect]
     Active Substance: PEMBROLIZUMAB
     Dosage: 200 MILLIGRAM EVERY 3 WEEKS
     Dates: start: 20230210, end: 20230210
  25. KEYTRUDA [Suspect]
     Active Substance: PEMBROLIZUMAB
     Dosage: 200 MG, EVERY 3 WEEKS
     Dates: start: 20230224, end: 20230224
  26. PANTOPRAZOLE SODIUM [Concomitant]
     Active Substance: PANTOPRAZOLE SODIUM
     Dosage: 20 MG
     Dates: start: 20230130, end: 20230220
  27. KETOPROFEN [Concomitant]
     Active Substance: KETOPROFEN
     Dosage: 100 MG
     Dates: start: 20230130, end: 20230220
  28. DOLIPRANE [Concomitant]
     Active Substance: ACETAMINOPHEN
     Dosage: 500 MG
     Dates: start: 20230130, end: 20230227
  29. ACUPAN [Concomitant]
     Active Substance: NEFOPAM HYDROCHLORIDE
     Dosage: UNK
     Dates: start: 20230130, end: 20230227

REACTIONS (2)
  - Meningitis aseptic [Fatal]
  - Neoplasm progression [Unknown]

NARRATIVE: CASE EVENT DATE: 20230101
